FAERS Safety Report 7624484-0 (Version None)
Quarter: 2011Q3

REPORT INFORMATION
  Report Type: 
  Country: None (occurrence: None)
  Receive Date: 20110720
  Receipt Date: 20110707
  Transmission Date: 20111222
  Serious: Yes (Other)
  Sender: FDA-Public Use
  Company Number: US-BAYER-201035677NA

PATIENT
  Age: 18 Year
  Sex: Female
  Weight: 58.957 kg

DRUGS (5)
  1. SEASONALE [Concomitant]
     Dosage: UNK
     Dates: start: 20060410
  2. ACIPHEX [Concomitant]
  3. IBUPROFEN [Concomitant]
  4. YASMIN [Suspect]
     Indication: ORAL CONTRACEPTION
     Dosage: UNK UNK, UNK
     Route: 048
     Dates: start: 20040301, end: 20080301
  5. YAZ [Suspect]
     Indication: ORAL CONTRACEPTION
     Dosage: UNK UNK, UNK
     Route: 048
     Dates: start: 20040301, end: 20080301

REACTIONS (2)
  - CHOLECYSTITIS CHRONIC [None]
  - GALLBLADDER DISORDER [None]
